FAERS Safety Report 19082714 (Version 1)
Quarter: 2021Q2

REPORT INFORMATION
  Report Type: Spontaneous
  Country: NL (occurrence: NL)
  Receive Date: 20210401
  Receipt Date: 20210401
  Transmission Date: 20210717
  Serious: Yes (Other)
  Sender: FDA-Public Use
  Company Number: NL-ACCORD-221480

PATIENT
  Sex: Male
  Weight: 91 kg

DRUGS (2)
  1. PLAQUENIL [Concomitant]
     Active Substance: HYDROXYCHLOROQUINE SULFATE
     Dosage: COATED TABLET, 200 MG (MILLIGRAMS)
  2. METHOTREXATE. [Suspect]
     Active Substance: METHOTREXATE
     Indication: RHEUMATOID ARTHRITIS
     Dosage: 2.5 MG / BRAND NAME NOT SPECIFIED,?1X PER WEEK 10 PIECES OF 2.5 MG, 25 MG
     Dates: start: 202001

REACTIONS (1)
  - Erectile dysfunction [Recovering/Resolving]
